FAERS Safety Report 11812513 (Version 1)
Quarter: 2015Q4

REPORT INFORMATION
  Report Type: Spontaneous
  Country: AU (occurrence: AU)
  Receive Date: 20151208
  Receipt Date: 20151208
  Transmission Date: 20160305
  Serious: Yes (Hospitalization)
  Sender: FDA-Public Use
  Company Number: AU-ALLERGAN-1525561US

PATIENT
  Sex: Female

DRUGS (2)
  1. BOTOX [Suspect]
     Active Substance: ONABOTULINUMTOXINA
     Indication: SKIN WRINKLING
     Dosage: UNK UNK, SINGLE
     Route: 030
  2. DYSPORT [Suspect]
     Active Substance: ABOBOTULINUMTOXINA
     Indication: SKIN WRINKLING
     Dosage: UNK UNK, SINGLE
     Route: 030

REACTIONS (18)
  - Influenza like illness [Unknown]
  - Hyperacusis [Unknown]
  - Pyrexia [Unknown]
  - Neck pain [Unknown]
  - Fatigue [Unknown]
  - Asthenia [Unknown]
  - Feeling abnormal [Unknown]
  - Vision blurred [Unknown]
  - Parosmia [Unknown]
  - Photophobia [Unknown]
  - Off label use [Unknown]
  - Chills [Unknown]
  - Rash generalised [Unknown]
  - Speech disorder [Unknown]
  - Diarrhoea [Unknown]
  - Pain [Unknown]
  - Facial pain [Unknown]
  - Vomiting [Unknown]
